FAERS Safety Report 19685752 (Version 1)
Quarter: 2021Q3

REPORT INFORMATION
  Report Type: Spontaneous
  Country: US (occurrence: US)
  Receive Date: 20210811
  Receipt Date: 20210811
  Transmission Date: 20211014
  Serious: No
  Sender: FDA-Public Use
  Company Number: US-ORGANON-O2108USA000469

PATIENT
  Age: 38 Year
  Sex: Female

DRUGS (2)
  1. FOLLISTIM AQ [Suspect]
     Active Substance: FOLLITROPIN
     Dosage: 150 INTERNATIONAL UNIT
     Dates: start: 2021
  2. FOLLISTIM AQ [Suspect]
     Active Substance: FOLLITROPIN

REACTIONS (5)
  - Poor quality device used [Unknown]
  - Product packaging quantity issue [Unknown]
  - Incorrect dose administered [Unknown]
  - No adverse event [Unknown]
  - Circumstance or information capable of leading to medication error [Unknown]

NARRATIVE: CASE EVENT DATE: 20210803
